FAERS Safety Report 25194795 (Version 1)
Quarter: 2025Q2

REPORT INFORMATION
  Report Type: Report from Study
  Country: CA (occurrence: CA)
  Receive Date: 20250414
  Receipt Date: 20250414
  Transmission Date: 20250716
  Serious: Yes (Death, Other)
  Sender: TAKEDA
  Company Number: CA-TAKEDA-2024TUS020502

PATIENT
  Sex: Female

DRUGS (10)
  1. HUMAN IMMUNOGLOBULIN G [Suspect]
     Active Substance: HUMAN IMMUNOGLOBULIN G
     Indication: Secondary immunodeficiency
     Dosage: 10 GRAM, 1/WEEK
     Dates: start: 20230516
  2. HUMAN IMMUNOGLOBULIN G [Suspect]
     Active Substance: HUMAN IMMUNOGLOBULIN G
     Dosage: 10 GRAM, 1/WEEK
  3. MAGNESIUM [Concomitant]
     Active Substance: MAGNESIUM
  4. ACYCLOVIR [Concomitant]
     Active Substance: ACYCLOVIR
  5. PREGABALIN [Concomitant]
     Active Substance: PREGABALIN
  6. LANSOPRAZOLE [Concomitant]
     Active Substance: LANSOPRAZOLE
  7. ASPIRIN [Concomitant]
     Active Substance: ASPIRIN
  8. DEXAMETHASONE [Concomitant]
     Active Substance: DEXAMETHASONE
  9. POMALIDOMIDE [Concomitant]
     Active Substance: POMALIDOMIDE
  10. SARCLISA [Concomitant]
     Active Substance: ISATUXIMAB-IRFC

REACTIONS (2)
  - Death [Fatal]
  - Blood test abnormal [Recovering/Resolving]
